FAERS Safety Report 11322350 (Version 1)
Quarter: 2015Q3

REPORT INFORMATION
  Report Type: Spontaneous
  Country: IT (occurrence: None)
  Receive Date: 20150728
  Receipt Date: 20150728
  Transmission Date: 20151125
  Serious: Yes (Hospitalization, Other)
  Sender: FDA-Public Use
  Company Number: DEP_03237_2015

PATIENT
  Age: 76 Year
  Sex: Male

DRUGS (2)
  1. DUROGESIC (DUROGESIC (FENTANYL) (NOT SPEICIFED) [Suspect]
     Active Substance: FENTANYL
     Indication: BACK PAIN
     Route: 062
     Dates: start: 20150423
  2. PALEXIA [Suspect]
     Active Substance: TAPENTADOL HYDROCHLORIDE
     Indication: BACK PAIN
     Route: 048
     Dates: start: 20150414

REACTIONS (7)
  - Syncope [None]
  - Confusional state [None]
  - Coma [None]
  - Sopor [None]
  - Psychomotor hyperactivity [None]
  - Constipation [None]
  - Drug interaction [None]

NARRATIVE: CASE EVENT DATE: 20150511
